FAERS Safety Report 18659789 (Version 1)
Quarter: 2020Q4

REPORT INFORMATION
  Report Type: Spontaneous
  Country: ES (occurrence: ES)
  Receive Date: 20201224
  Receipt Date: 20201224
  Transmission Date: 20210114
  Serious: Yes (Other)
  Sender: FDA-Public Use
  Company Number: ES-PFIZER INC-2020507386

PATIENT
  Age: 67 Year
  Sex: Female
  Weight: 101 kg

DRUGS (10)
  1. METFORMIN [Concomitant]
     Active Substance: METFORMIN HYDROCHLORIDE
     Indication: TYPE 2 DIABETES MELLITUS
     Dosage: UNK
     Route: 048
     Dates: start: 20170518
  2. VIDESIL [Concomitant]
     Indication: VITAMIN D DEFICIENCY
     Dosage: UNK
     Route: 048
     Dates: start: 20170518
  3. ELECOR [Suspect]
     Active Substance: EPLERENONE
     Indication: OEDEMA
     Dosage: 50 MG, DAILY
     Dates: start: 20060310, end: 20201102
  4. EBASTINA ALTER [Concomitant]
     Indication: PRURITUS
     Dosage: UNK
  5. ADENURIC [Suspect]
     Active Substance: FEBUXOSTAT
     Indication: GOUT
     Dosage: UNK
     Route: 048
     Dates: start: 20130613
  6. HONGOSERIL [Suspect]
     Active Substance: ITRACONAZOLE
     Indication: SKIN CANDIDA
     Dosage: 100 MG, DAILY
     Dates: start: 20201102
  7. LAMISIL [Suspect]
     Active Substance: TERBINAFINE HYDROCHLORIDE
     Indication: SKIN CANDIDA
     Dosage: 1 APPLICATION / 12 HOURS
     Route: 061
     Dates: start: 20201102, end: 20201127
  8. TRINOMIA [ACETYLSALICYLIC ACID;ATORVASTATIN CALCIUM;RAMIPRIL] [Suspect]
     Active Substance: ASPIRIN\ATORVASTATIN CALCIUM\RAMIPRIL
     Indication: DYSLIPIDAEMIA
     Dosage: 100/20/2,5 MG
     Route: 048
     Dates: start: 20190402, end: 20201127
  9. ELOCOM [Concomitant]
     Active Substance: MOMETASONE FUROATE
     Indication: SKIN CANDIDA
     Dosage: 1 APPLICATION / 12 H
     Route: 061
     Dates: start: 20201102
  10. BELOKEN [Suspect]
     Active Substance: METOPROLOL TARTRATE
     Indication: CARDIAC FAILURE
     Dosage: 100 MG
     Route: 048
     Dates: start: 20181123, end: 20201127

REACTIONS (2)
  - Photosensitivity reaction [Unknown]
  - Off label use [Recovered/Resolved]

NARRATIVE: CASE EVENT DATE: 20060310
